FAERS Safety Report 14117003 (Version 2)
Quarter: 2017Q4

REPORT INFORMATION
  Report Type: Spontaneous
  Country: US (occurrence: US)
  Receive Date: 20171023
  Receipt Date: 20171130
  Transmission Date: 20180321
  Serious: No
  Sender: FDA-Public Use
  Company Number: US-ASTRAZENECA-2017SF06839

PATIENT
  Age: 16470 Day
  Sex: Female

DRUGS (2)
  1. INSULIN [Concomitant]
     Active Substance: INSULIN NOS
  2. BYDUREON [Suspect]
     Active Substance: EXENATIDE
     Indication: GLYCOSYLATED HAEMOGLOBIN INCREASED
     Route: 058

REACTIONS (11)
  - Injection site pain [Unknown]
  - Product use issue [Unknown]
  - Product use in unapproved indication [Unknown]
  - Device malfunction [Recovering/Resolving]
  - Glycosylated haemoglobin increased [Unknown]
  - Injection site mass [Unknown]
  - Wrong technique in product usage process [Unknown]
  - Injection site haemorrhage [Recovered/Resolved]
  - Weight decreased [Unknown]
  - Injection site nodule [Unknown]
  - Off label use [Unknown]

NARRATIVE: CASE EVENT DATE: 20171016
